FAERS Safety Report 18966562 (Version 2)
Quarter: 2021Q1

REPORT INFORMATION
  Report Type: Report from Study
  Country: CA (occurrence: CA)
  Receive Date: 20210304
  Receipt Date: 20210331
  Transmission Date: 20210420
  Serious: Yes (Other)
  Sender: FDA-Public Use
  Company Number: CA-JNJFOC-20210301329

PATIENT
  Age: 9 Year
  Sex: Male
  Weight: 34 kg

DRUGS (2)
  1. REMICADE [Suspect]
     Active Substance: INFLIXIMAB
     Indication: CROHN^S DISEASE
     Dosage: ON 25?MAR?2021, THE PATIENT HAD RECEIVED 04TH 250 MILLIGRAM INFLIXIMAB INFUSION
     Route: 042
     Dates: start: 20201230
  2. REMICADE [Suspect]
     Active Substance: INFLIXIMAB
     Route: 042

REACTIONS (4)
  - Off label use [Unknown]
  - Drug level decreased [Unknown]
  - Crohn^s disease [Unknown]
  - Product use issue [Unknown]

NARRATIVE: CASE EVENT DATE: 202102
